FAERS Safety Report 10032815 (Version 1)
Quarter: 2014Q1

REPORT INFORMATION
  Report Type: Spontaneous
  Country: US (occurrence: US)
  Receive Date: 20140324
  Receipt Date: 20140324
  Transmission Date: 20141002
  Serious: Yes (Other)
  Sender: FDA-Public Use
  Company Number: US-PFIZER INC-2014083513

PATIENT
  Age: 86 Year
  Sex: Female
  Weight: 104.31 kg

DRUGS (3)
  1. CELEBREX [Suspect]
     Indication: ARTHRITIS
     Dosage: 200 MG, DAILY
  2. NEURONTIN [Concomitant]
     Indication: OPTIC NERVE INJURY
     Dosage: UNK
  3. LORTAB [Concomitant]
     Dosage: AS NEEDED

REACTIONS (1)
  - Arthropathy [Unknown]
